FAERS Safety Report 13429742 (Version 2)
Quarter: 2017Q2

REPORT INFORMATION
  Report Type: Spontaneous
  Country: TR (occurrence: TR)
  Receive Date: 20170412
  Receipt Date: 20170426
  Transmission Date: 20170830
  Serious: Yes (Other)
  Sender: FDA-Public Use
  Company Number: TR-MERCK KGAA-1065297

PATIENT
  Age: 30 Year

DRUGS (2)
  1. NOVOTHYROX [Suspect]
     Active Substance: LEVOTHYROXINE SODIUM
     Dates: start: 2015
  2. NOVOTHYROX [Suspect]
     Active Substance: LEVOTHYROXINE SODIUM
     Indication: THYROID DISORDER
     Dates: start: 2015

REACTIONS (2)
  - Drug dose omission [Unknown]
  - Type 1 diabetes mellitus [Not Recovered/Not Resolved]
